FAERS Safety Report 8322588-0 (Version None)
Quarter: 2012Q2

REPORT INFORMATION
  Report Type: 
  Country: None (occurrence: None)
  Receive Date: 20120430
  Receipt Date: 20120419
  Transmission Date: 20120825
  Serious: Yes (Hospitalization, Other)
  Sender: FDA-Public Use
  Company Number: CA-JNJFOC-20120409051

PATIENT
  Sex: Female
  Weight: 72 kg

DRUGS (1)
  1. REMICADE [Suspect]
     Indication: COLITIS ULCERATIVE
     Dosage: AT EVERY 2, 6, 8 WEEKS FOR 52 WEEKS
     Route: 042
     Dates: start: 20120101

REACTIONS (5)
  - ASTHENIA [None]
  - HYPERHIDROSIS [None]
  - SLOW RESPONSE TO STIMULI [None]
  - BODY TEMPERATURE INCREASED [None]
  - FATIGUE [None]
